FAERS Safety Report 19079410 (Version 6)
Quarter: 2023Q1

REPORT INFORMATION
  Report Type: Spontaneous
  Country: JP (occurrence: JP)
  Receive Date: 20210331
  Receipt Date: 20230124
  Transmission Date: 20230418
  Serious: Yes (Hospitalization, Disabling, Other)
  Sender: FDA-Public Use
  Company Number: JP-FERRINGPH-2021FE02045

PATIENT

DRUGS (5)
  1. DEGARELIX [Suspect]
     Active Substance: DEGARELIX
     Indication: Prostate cancer
     Dosage: 80 MG, MONTHLY
     Route: 058
     Dates: start: 20200408, end: 20210303
  2. DEGARELIX [Suspect]
     Active Substance: DEGARELIX
     Dosage: 240 MG, ONCE/SINGLE
     Route: 058
     Dates: start: 20200311
  3. CASODEX [Suspect]
     Active Substance: BICALUTAMIDE
     Indication: Prostate cancer
     Dosage: 80 MG, DAILY
     Route: 048
     Dates: start: 20200311, end: 20210318
  4. XTANDI [Suspect]
     Active Substance: ENZALUTAMIDE
     Indication: Product used for unknown indication
     Dosage: 160 MG, DAILY
     Route: 048
     Dates: start: 20210319, end: 20210320
  5. FERRIC OXIDE RED [Concomitant]
     Active Substance: FERRIC OXIDE RED
     Route: 065

REACTIONS (5)
  - Haematuria [Not Recovered/Not Resolved]
  - Urinary retention [Unknown]
  - Decreased appetite [Unknown]
  - Rectal cancer [Not Recovered/Not Resolved]
  - Urine output decreased [Recovering/Resolving]

NARRATIVE: CASE EVENT DATE: 20200414
